FAERS Safety Report 9440443 (Version 1)
Quarter: 2013Q3

REPORT INFORMATION
  Report Type: Spontaneous
  Country: GB (occurrence: GB)
  Receive Date: 20130805
  Receipt Date: 20130805
  Transmission Date: 20140515
  Serious: Yes (Hospitalization)
  Sender: FDA-Public Use
  Company Number: PHHY2013GB080565

PATIENT
  Age: 65 Year
  Sex: Male

DRUGS (10)
  1. RIFAMPICIN [Suspect]
     Indication: SEPSIS
     Dosage: 600 MG, BID
     Route: 048
     Dates: start: 20130615, end: 20130711
  2. FOLIC ACID [Concomitant]
     Dosage: 5 MG, QD
  3. FLUCLOXACILLIN SODIUM [Concomitant]
     Dosage: 2 G, QID
     Route: 042
  4. OMEPRAZOLE [Concomitant]
     Dosage: 40 MG, BID
     Route: 048
  5. FUROSEMIDE [Concomitant]
     Dosage: 80 MG, QD
     Route: 048
  6. SANDO K [Concomitant]
     Dosage: 2 DF, TID
     Route: 048
  7. FERROUS SULPHATE [Concomitant]
     Dosage: 200 MG, TID
     Route: 048
  8. PARACETAMOL [Concomitant]
     Dosage: 1 G, QID
     Route: 048
  9. PARACETAMOL [Concomitant]
     Route: 042
  10. ZOPICLONE [Concomitant]
     Dosage: 7.5 MG, QD AT NIGHT
     Route: 048

REACTIONS (2)
  - Hypocalcaemia [Not Recovered/Not Resolved]
  - Vitamin D decreased [Not Recovered/Not Resolved]
